FAERS Safety Report 4537179-7 (Version None)
Quarter: 2004Q4

REPORT INFORMATION
  Report Type: 
  Country: None (occurrence: None)
  Receive Date: 20041223
  Receipt Date: 20041216
  Transmission Date: 20050328
  Serious: Yes (Death)
  Sender: FDA-Public Use
  Company Number: GBWYE288617DEC04

PATIENT
  Age: 74 Year
  Sex: Female
  Weight: 54 kg

DRUGS (5)
  1. ENBREL [Suspect]
     Indication: RHEUMATOID ARTHRITIS
     Route: 058
     Dates: start: 20040123
  2. PREDNISOLONE [Concomitant]
     Indication: RHEUMATOID ARTHRITIS
     Dosage: 7.5MG FREQUENCY UNKNOWN
     Route: 048
  3. FOSAMAX [Concomitant]
     Indication: OSTEOPOROSIS
     Route: 048
  4. RELIFEX [Concomitant]
     Indication: RHEUMATOID ARTHRITIS
     Route: 048
  5. FERROUS SULFATE TAB [Concomitant]
     Dosage: 100MG FREQUNECY UNSPECIFIED
     Route: 048

REACTIONS (1)
  - MYOCARDIAL INFARCTION [None]
